FAERS Safety Report 9991341 (Version 1)
Quarter: 2014Q1

REPORT INFORMATION
  Report Type: Spontaneous
  Country: US (occurrence: None)
  Receive Date: 20140123
  Receipt Date: 20140123
  Transmission Date: 20141002
  Serious: Yes (Hospitalization)
  Sender: FDA-Public Use
  Company Number: UTC-040433

PATIENT
  Age: 58 Year
  Sex: Female
  Weight: 58.18 kg

DRUGS (2)
  1. REMODULIN (10 MILLIGRAM/MILLILITERS, INJECTION FOR INFUSION) (TREPROSTINIL SODIUM) [Suspect]
     Indication: COR PULMONALE CHRONIC
     Dosage: 115.2 UG/KG (0.08 UG/KG, 1 IN 1 MIN), SUBCUTANEOUS
     Dates: start: 20110819
  2. ADCIRCA (TADALAFIL) [Concomitant]

REACTIONS (2)
  - Pain [None]
  - Dyspnoea [None]
